FAERS Safety Report 4903376-1 (Version None)
Quarter: 2006Q1

REPORT INFORMATION
  Report Type: 
  Country: None (occurrence: None)
  Receive Date: 20060208
  Receipt Date: 20060131
  Transmission Date: 20060701
  Serious: Yes (Disabling)
  Sender: FDA-Public Use
  Company Number: PHMT2006CA00600

PATIENT
  Age: 87 Year
  Sex: Female

DRUGS (6)
  1. LAMISIL [Suspect]
     Indication: ONYCHOMYCOSIS
     Dosage: 250 MG/D
     Route: 048
     Dates: start: 20050823, end: 20051001
  2. LAMISIL [Suspect]
     Dosage: 250 MG/D
     Route: 048
     Dates: start: 20051201, end: 20060101
  3. RESTORIL [Concomitant]
  4. NORVASC [Concomitant]
  5. CALCIUM GLUCONATE [Concomitant]
  6. VITAMIN D [Concomitant]

REACTIONS (4)
  - AGEUSIA [None]
  - DEAFNESS BILATERAL [None]
  - HEPATIC ENZYME INCREASED [None]
  - RENAL IMPAIRMENT [None]
